FAERS Safety Report 15494043 (Version 1)
Quarter: 2018Q4

REPORT INFORMATION
  Report Type: Spontaneous
  Country: US (occurrence: US)
  Receive Date: 20181005
  Receipt Date: 20181005
  Transmission Date: 20190205
  Serious: No
  Sender: FDA-Public Use
  Company Number: None

PATIENT
  Age: 59 Year
  Sex: Female
  Weight: 40.5 kg

DRUGS (7)
  1. LINZESS [Suspect]
     Active Substance: LINACLOTIDE
     Indication: IRRITABLE BOWEL SYNDROME
     Dosage: ?          QUANTITY:1 CAPSULE(S);?
     Route: 048
     Dates: start: 20181004, end: 20181005
  2. SYNTHROID [Concomitant]
     Active Substance: LEVOTHYROXINE SODIUM
  3. ARMOUR THYROID [Concomitant]
     Active Substance: THYROID, PORCINE
  4. MULTIVIT [Concomitant]
     Active Substance: VITAMINS
  5. TRI-EST WITH PROGESTERONE [Concomitant]
  6. DHEA 10 [Concomitant]
  7. LEXAPRO [Concomitant]
     Active Substance: ESCITALOPRAM OXALATE

REACTIONS (4)
  - Diarrhoea [None]
  - Pain [None]
  - Muscle spasms [None]
  - Dehydration [None]

NARRATIVE: CASE EVENT DATE: 20181004
